FAERS Safety Report 6660691-1 (Version None)
Quarter: 2010Q1

REPORT INFORMATION
  Report Type: 
  Country: None (occurrence: None)
  Receive Date: 20100326
  Receipt Date: 20100316
  Transmission Date: 20100710
  Serious: Yes (Death)
  Sender: FDA-Public Use
  Company Number: B0642693A

PATIENT
  Age: 6 Year
  Sex: Female

DRUGS (4)
  1. MELPHALAN HYDROCHLORIDE [Suspect]
     Indication: NEUROBLASTOMA
  2. CARBOPLATIN [Suspect]
     Indication: NEUROBLASTOMA
  3. ETOPOSIDE [Concomitant]
  4. STEM CELL TRANSPLANT [Concomitant]

REACTIONS (4)
  - HEPATIC FUNCTION ABNORMAL [None]
  - PULMONARY VENO-OCCLUSIVE DISEASE [None]
  - RENAL IMPAIRMENT [None]
  - STEM CELL TRANSPLANT [None]
